FAERS Safety Report 25973486 (Version 2)
Quarter: 2025Q4

REPORT INFORMATION
  Report Type: Report from Study
  Country: US (occurrence: US)
  Receive Date: 20251029
  Receipt Date: 20251203
  Transmission Date: 20260118
  Serious: No
  Sender: ACADIA PHARMACEUTICALS
  Company Number: US-ACADIA PHARMACEUTICALS INC.-ACA-2025-PIM-011528

PATIENT
  Sex: Female

DRUGS (2)
  1. NUPLAZID [Suspect]
     Active Substance: PIMAVANSERIN TARTRATE
     Indication: Parkinson^s disease
     Dosage: 34 MILLIGRAM, TAKE 1 CAPSULE BY MOUTH EVERY DAY
     Route: 048
     Dates: start: 20240109
  2. CARBIDOPA\LEVODOPA [Concomitant]
     Active Substance: CARBIDOPA\LEVODOPA

REACTIONS (4)
  - Condition aggravated [Not Recovered/Not Resolved]
  - Delusion [Not Recovered/Not Resolved]
  - Memory impairment [Not Recovered/Not Resolved]
  - Intentional dose omission [Unknown]
